FAERS Safety Report 8375755-4 (Version None)
Quarter: 2012Q2

REPORT INFORMATION
  Report Type: 
  Country: None (occurrence: None)
  Receive Date: 20120518
  Receipt Date: 20120518
  Transmission Date: 20120825
  Serious: Yes (Hospitalization)
  Sender: FDA-Public Use
  Company Number: None

PATIENT
  Sex: Female
  Weight: 116 kg

DRUGS (3)
  1. HERCEPTIN [Suspect]
     Dosage: 208 MG
     Dates: end: 20110201
  2. CARBOPLATIN [Suspect]
     Dosage: 780 MG
     Dates: end: 20110118
  3. TAXOTERE [Suspect]
     Dosage: 150 MG
     Dates: end: 20110118

REACTIONS (7)
  - BONE PAIN [None]
  - CHEST DISCOMFORT [None]
  - NAUSEA [None]
  - DEHYDRATION [None]
  - ANAEMIA [None]
  - MUSCULOSKELETAL CHEST PAIN [None]
  - DYSPNOEA [None]
